FAERS Safety Report 15390900 (Version 1)
Quarter: 2018Q3

REPORT INFORMATION
  Report Type: Spontaneous
  Country: US (occurrence: US)
  Receive Date: 20180910
  Receipt Date: 20180910
  Transmission Date: 20181010
  Serious: No
  Sender: FDA-Public Use
  Company Number: None

PATIENT
  Age: 63 Year
  Sex: Female

DRUGS (1)
  1. FORTEO [Suspect]
     Active Substance: TERIPARATIDE
     Indication: SENILE OSTEOPOROSIS
     Route: 058
     Dates: start: 201808

REACTIONS (5)
  - Insurance issue [None]
  - Injection site extravasation [None]
  - Wrong technique in product usage process [None]
  - Injection site haemorrhage [None]
  - Drug dose omission [None]

NARRATIVE: CASE EVENT DATE: 20180910
